FAERS Safety Report 22781106 (Version 2)
Quarter: 2024Q1

REPORT INFORMATION
  Report Type: Report from Study
  Country: CA (occurrence: CA)
  Receive Date: 20230803
  Receipt Date: 20240229
  Transmission Date: 20240410
  Serious: Yes (Other)
  Sender: FDA-Public Use
  Company Number: CA-MYLANLABS-2023M1079147

PATIENT

DRUGS (1)
  1. HULIO [Suspect]
     Active Substance: ADALIMUMAB-FKJP
     Indication: Psoriasis
     Dosage: UNK UNK, BIWEEKLY
     Route: 058
     Dates: start: 20230707

REACTIONS (3)
  - Dementia [Unknown]
  - Speech disorder [Unknown]
  - Product dose omission issue [Unknown]
